FAERS Safety Report 10495523 (Version 1)
Quarter: 2014Q4

REPORT INFORMATION
  Report Type: Spontaneous
  Country: US (occurrence: US)
  Receive Date: 20141003
  Receipt Date: 20141003
  Transmission Date: 20150528
  Serious: No
  Sender: FDA-Public Use
  Company Number: US-TEVA-512949USA

PATIENT
  Sex: Female

DRUGS (1)
  1. COPAXONE [Suspect]
     Active Substance: GLATIRAMER ACETATE

REACTIONS (7)
  - Oral herpes [Unknown]
  - Product outer packaging issue [Unknown]
  - Injection site urticaria [Unknown]
  - Adverse event [Unknown]
  - Drug ineffective [Unknown]
  - Drug effect decreased [Unknown]
  - Malaise [Unknown]
